FAERS Safety Report 9492131 (Version 3)
Quarter: 2013Q4

REPORT INFORMATION
  Report Type: Report from Study
  Country: US (occurrence: US)
  Receive Date: 20130830
  Receipt Date: 20131104
  Transmission Date: 20140711
  Serious: Yes (Other)
  Sender: FDA-Public Use
  Company Number: US-ACTELION-A-NJ2013-87703

PATIENT
  Age: 68 Year
  Sex: Female

DRUGS (8)
  1. TRACLEER [Suspect]
     Indication: PULMONARY ARTERIAL HYPERTENSION
     Dosage: 125 MG, BID
     Route: 048
     Dates: start: 2003
  2. COUMADIN [Concomitant]
  3. PREDNISONE [Concomitant]
     Dosage: 5 MG, QD
  4. PROZAC [Concomitant]
     Dosage: 20 MG, UNK
  5. CLONAZEPAM [Concomitant]
     Dosage: 5 MG, QD
  6. K-DUR [Concomitant]
     Dosage: 10 MEQ, QD
  7. BENICAR [Concomitant]
     Dosage: UNK, QD
  8. TRAZODONE [Concomitant]
     Dosage: 100 MG, UNK

REACTIONS (8)
  - Systemic lupus erythematosus [Unknown]
  - Fatigue [Unknown]
  - Dyspnoea exertional [Unknown]
  - Pulmonary embolism [Unknown]
  - Dyspnoea [Unknown]
  - Abdominal discomfort [Unknown]
  - Nausea [Unknown]
  - Vomiting [Unknown]
